FAERS Safety Report 14704618 (Version 1)
Quarter: 2018Q2

REPORT INFORMATION
  Report Type: Spontaneous
  Country: PH (occurrence: PH)
  Receive Date: 20180402
  Receipt Date: 20180402
  Transmission Date: 20180711
  Serious: Yes (Hospitalization)
  Sender: FDA-Public Use
  Company Number: PH-TEVA-2018-PH-876809

PATIENT
  Age: 32 Year
  Sex: Female

DRUGS (1)
  1. BENDAMUSTINE HYDROCHLORIDE. [Suspect]
     Active Substance: BENDAMUSTINE HYDROCHLORIDE
     Indication: HODGKIN^S DISEASE
     Dosage: (123 MG, DAY 1, DAY 2, CYCLE 1)
     Route: 042
     Dates: start: 20180301

REACTIONS (2)
  - Off label use [Unknown]
  - Blister [Recovering/Resolving]
